FAERS Safety Report 8324717-1 (Version None)
Quarter: 2012Q2

REPORT INFORMATION
  Report Type: 
  Country: None (occurrence: None)
  Receive Date: 20120501
  Receipt Date: 20120423
  Transmission Date: 20120825
  Serious: Yes (Hospitalization, Other)
  Sender: FDA-Public Use
  Company Number: US-US-EMD SERONO, INC.-7004207

PATIENT
  Sex: Female
  Weight: 63 kg

DRUGS (4)
  1. CALCIUM [Concomitant]
     Indication: BONE DISORDER
  2. REBIF [Suspect]
     Indication: MULTIPLE SCLEROSIS
     Route: 058
     Dates: start: 20040101
  3. MAGNESIUM [Concomitant]
     Indication: BONE DISORDER
  4. NAPROXEN (ALEVE) [Concomitant]
     Indication: PREMEDICATION

REACTIONS (14)
  - FALL [None]
  - PALPITATIONS [None]
  - THORACIC VERTEBRAL FRACTURE [None]
  - DISORIENTATION [None]
  - CATARACT [None]
  - INTERVERTEBRAL DISC PROTRUSION [None]
  - HEAD INJURY [None]
  - MEMORY IMPAIRMENT [None]
  - INFLUENZA LIKE ILLNESS [None]
  - TOOTH INJURY [None]
  - SWELLING [None]
  - RIB FRACTURE [None]
  - BLOOD TEST ABNORMAL [None]
  - LOSS OF CONSCIOUSNESS [None]
